FAERS Safety Report 14613075 (Version 2)
Quarter: 2018Q1

REPORT INFORMATION
  Report Type: Spontaneous
  Country: US (occurrence: US)
  Receive Date: 20180308
  Receipt Date: 20180318
  Transmission Date: 20180509
  Serious: Yes (Other)
  Sender: FDA-Public Use
  Company Number: US-009507513-1803USA002547

PATIENT
  Age: 4 Year
  Sex: Male

DRUGS (1)
  1. SINGULAIR [Suspect]
     Active Substance: MONTELUKAST SODIUM
     Route: 048

REACTIONS (6)
  - Crying [Unknown]
  - Sleep terror [Unknown]
  - Suicidal ideation [Unknown]
  - Insomnia [Unknown]
  - Screaming [Unknown]
  - Aggression [Unknown]
